FAERS Safety Report 25189904 (Version 1)
Quarter: 2025Q2

REPORT INFORMATION
  Report Type: Spontaneous
  Country: ZA (occurrence: ZA)
  Receive Date: 20250411
  Receipt Date: 20250411
  Transmission Date: 20250716
  Serious: Yes (Other)
  Sender: BAYER
  Company Number: ZA-BAYER-2025A046822

PATIENT
  Age: 65 Year
  Sex: Female

DRUGS (5)
  1. ANGELIQ [Suspect]
     Active Substance: DROSPIRENONE\ESTRADIOL
     Dosage: 1 DF, QD
     Route: 048
  2. EUTHYROX [Concomitant]
     Active Substance: LEVOTHYROXINE SODIUM
     Dosage: 1 DF, QD
     Route: 048
  3. ROSUVASTATIN [Concomitant]
     Active Substance: ROSUVASTATIN
     Dosage: 5 MG, QD
     Route: 048
  4. FOLIC ACID [Concomitant]
     Active Substance: FOLIC ACID
     Route: 048
  5. ALREX [Concomitant]
     Active Substance: LOTEPREDNOL ETABONATE
     Dosage: 1 DROP, BID
     Route: 047

REACTIONS (2)
  - Drug dependence [None]
  - Erythema [None]
